FAERS Safety Report 6206837-0 (Version None)
Quarter: 2009Q2

REPORT INFORMATION
  Report Type: 
  Country: None (occurrence: None)
  Receive Date: 20090528
  Receipt Date: 20090526
  Transmission Date: 20091009
  Serious: Yes (Hospitalization, Other)
  Sender: FDA-Public Use
  Company Number: US-GENENTECH-282372

PATIENT
  Sex: Male
  Weight: 82.993 kg

DRUGS (6)
  1. AVASTIN [Suspect]
     Indication: COLON CANCER METASTATIC
     Dosage: 450 MG, Q14D
     Route: 042
     Dates: start: 20090106, end: 20090429
  2. PRE-MEDICATIONS (UNK INGREDIENTS) [Concomitant]
     Indication: PREMEDICATION
     Dosage: UNK
     Dates: start: 20090429
  3. OXALIPLATIN [Concomitant]
     Indication: DRUG USE FOR UNKNOWN INDICATION
     Dosage: 170 MG, UNK
     Dates: start: 20090429
  4. LEUCOVORIN CALCIUM [Concomitant]
     Indication: DRUG USE FOR UNKNOWN INDICATION
     Dosage: UNK
     Dates: start: 20090429
  5. CAL-MAG [Concomitant]
     Indication: DRUG USE FOR UNKNOWN INDICATION
     Dosage: UNK
     Dates: start: 20090429
  6. FLUOROURACIL [Concomitant]
     Indication: DRUG USE FOR UNKNOWN INDICATION
     Dosage: UNK
     Dates: start: 20090429

REACTIONS (1)
  - THROMBOTIC THROMBOCYTOPENIC PURPURA [None]
